FAERS Safety Report 4608902-8 (Version None)
Quarter: 2005Q1

REPORT INFORMATION
  Report Type: 
  Country: None (occurrence: None)
  Receive Date: 20050309
  Receipt Date: 20050301
  Transmission Date: 20050727
  Serious: Yes (Hospitalization)
  Sender: FDA-Public Use
  Company Number: 2005037697

PATIENT
  Age: 38 Year
  Sex: Male

DRUGS (2)
  1. CELEBRA (CELECOXIB) [Suspect]
     Indication: OSTEOARTHRITIS
     Dosage: 400 MG (200 MG, 2 IN 1 D), ORAL
     Route: 048
     Dates: start: 20020101, end: 20040901
  2. APOREX (DEXTROPROPOXYPHENE HYDROCHLORIDE, PARACETAMOL) [Concomitant]

REACTIONS (3)
  - HEADACHE [None]
  - SUBDURAL HAEMORRHAGE [None]
  - VOMITING [None]
